FAERS Safety Report 7765491-7 (Version None)
Quarter: 2011Q3

REPORT INFORMATION
  Report Type: 
  Country: None (occurrence: None)
  Receive Date: 20110921
  Receipt Date: 20110908
  Transmission Date: 20111222
  Serious: Yes (Hospitalization)
  Sender: FDA-Public Use
  Company Number: MX-GENENTECH-324318

PATIENT
  Sex: Female

DRUGS (3)
  1. DIPHENHYDRAMINE HCL [Concomitant]
     Indication: PRODUCT USED FOR UNKNOWN INDICATION
     Dosage: 50 MG, UNK
  2. MABTHERA [Suspect]
     Indication: ANTIPHOSPHOLIPID SYNDROME
     Dosage: UNK
     Route: 042
     Dates: start: 20110829, end: 20110829
  3. METHYLPREDNISOLONE [Concomitant]
     Indication: PRODUCT USED FOR UNKNOWN INDICATION
     Dosage: 200 MG, UNK

REACTIONS (6)
  - DERMATITIS [None]
  - HYPERTHERMIA [None]
  - THROMBOCYTOPENIA [None]
  - HYPOTENSION [None]
  - DIZZINESS [None]
  - URTICARIA [None]
